FAERS Safety Report 5831969-6 (Version None)
Quarter: 2008Q3

REPORT INFORMATION
  Report Type: 
  Country: None (occurrence: None)
  Receive Date: 20080804
  Receipt Date: 20080724
  Transmission Date: 20090109
  Serious: Yes (Other)
  Sender: FDA-Public Use
  Company Number: FR-JNJFOC-20080706380

PATIENT
  Age: 38 Year
  Sex: Female
  Weight: 36 kg

DRUGS (3)
  1. REMICADE [Suspect]
     Dosage: REINITIATED
     Route: 042
  2. REMICADE [Suspect]
     Indication: CROHN'S DISEASE
     Dosage: FOR 4 YEARS
     Route: 042
  3. UNSPECIFIED MEDICATION [Concomitant]
     Indication: PREMEDICATION

REACTIONS (2)
  - EXTRASYSTOLES [None]
  - PALPITATIONS [None]
